FAERS Safety Report 10404824 (Version 3)
Quarter: 2014Q4

REPORT INFORMATION
  Report Type: Spontaneous
  Country: GB (occurrence: GB)
  Receive Date: 20140825
  Receipt Date: 20141117
  Transmission Date: 20150528
  Serious: Yes (Life-Threatening, Hospitalization, Other)
  Sender: FDA-Public Use
  Company Number: GB-ROCHE-1450011

PATIENT
  Age: 61 Year
  Sex: Male
  Weight: 70 kg

DRUGS (5)
  1. ROACTEMRA [Suspect]
     Active Substance: TOCILIZUMAB
     Indication: RHEUMATOID ARTHRITIS
     Dosage: ONE SINGLE DOSE
     Route: 042
     Dates: start: 20140711, end: 20140711
  2. ADALIMUMAB [Concomitant]
     Active Substance: ADALIMUMAB
  3. HYDROXYCHLOROQUINE [Concomitant]
     Active Substance: HYDROXYCHLOROQUINE
  4. LEFLUNOMIDE. [Concomitant]
     Active Substance: LEFLUNOMIDE
  5. METHOTREXATE [Concomitant]
     Active Substance: METHOTREXATE

REACTIONS (14)
  - Muscular weakness [Recovering/Resolving]
  - Central nervous system lesion [Recovering/Resolving]
  - Pneumothorax [Unknown]
  - Disorientation [Unknown]
  - Nerve injury [Unknown]
  - Hemiplegia [Unknown]
  - Petechiae [Recovering/Resolving]
  - Muscular weakness [Unknown]
  - Vomiting [Recovering/Resolving]
  - Aspiration [Unknown]
  - Confabulation [Unknown]
  - Thrombotic microangiopathy [Recovering/Resolving]
  - Oedema [Recovering/Resolving]
  - Aphasia [Recovering/Resolving]

NARRATIVE: CASE EVENT DATE: 20140726
